FAERS Safety Report 26152437 (Version 1)
Quarter: 2025Q4

REPORT INFORMATION
  Report Type: Spontaneous
  Country: US (occurrence: US)
  Receive Date: 20251214
  Receipt Date: 20251214
  Transmission Date: 20260118
  Serious: No
  Sender: CELLTRION
  Company Number: US-CELLTRION INC.-2025US040723

PATIENT

DRUGS (2)
  1. ZYMFENTRA [Suspect]
     Active Substance: INFLIXIMAB-DYYB
     Indication: Crohn^s disease
     Dosage: 120 MG ADMINISTERED SUBCUTANEOUSLY ONCE EVERY 2 WEEKS
     Route: 058
     Dates: start: 20250929
  2. INFLIXIMAB-DYYB [Suspect]
     Active Substance: INFLIXIMAB-DYYB
     Indication: Crohn^s disease
     Dosage: 120 MG ADMINISTERED SUBCUTANEOUSLY ONCE EVERY 2 WEEKS SUBCUTANEOUS U
     Route: 058
     Dates: start: 20250929

REACTIONS (2)
  - Product dose omission issue [Recovering/Resolving]
  - Product storage error [Recovering/Resolving]

NARRATIVE: CASE EVENT DATE: 20251102
